FAERS Safety Report 6453549-4 (Version None)
Quarter: 2009Q4

REPORT INFORMATION
  Report Type: 
  Country: None (occurrence: None)
  Receive Date: 20091124
  Receipt Date: 20091113
  Transmission Date: 20100525
  Serious: Yes (Death, Other)
  Sender: FDA-Public Use
  Company Number: NL-BAYER-200939927GPV

PATIENT
  Age: 0 Hour
  Sex: Female

DRUGS (1)
  1. MIRENA [Suspect]
     Indication: DRUG USE FOR UNKNOWN INDICATION
     Route: 064
     Dates: start: 20090811, end: 20091003

REACTIONS (2)
  - PREMATURE BABY [None]
  - STILLBIRTH [None]
